FAERS Safety Report 9466733 (Version 3)
Quarter: 2013Q4

REPORT INFORMATION
  Report Type: Spontaneous
  Country: US (occurrence: US)
  Receive Date: 20130820
  Receipt Date: 20131009
  Transmission Date: 20140711
  Serious: No
  Sender: FDA-Public Use
  Company Number: US-009507513-1308USA008952

PATIENT
  Age: 76 Year
  Sex: Female

DRUGS (11)
  1. CLARITIN [Suspect]
     Indication: RHINORRHOEA
     Dosage: 10 MG, ONCE
     Route: 048
     Dates: start: 201304, end: 201306
  2. CLARITIN [Suspect]
     Indication: LACRIMATION INCREASED
  3. CLARITIN [Suspect]
     Indication: SNEEZING
  4. HUMALOG [Concomitant]
     Indication: DIABETES MELLITUS
     Dosage: UNK, UNKNOWN
  5. LANTUS [Concomitant]
     Indication: DIABETES MELLITUS
     Dosage: UNK, UNKNOWN
  6. VERAPAMIL [Concomitant]
     Indication: CARDIAC DISORDER
     Dosage: UNK, UNKNOWN
  7. SYNTHROID [Concomitant]
     Indication: THYROID DISORDER
     Dosage: UNK, UNKNOWN
  8. BENICAR [Concomitant]
     Indication: CARDIAC DISORDER
     Dosage: UNK, UNKNOWN
  9. FUROSEMIDE [Concomitant]
     Indication: FLUID RETENTION
     Dosage: UNK, UNKNOWN
  10. ERYTHROMYCIN [Concomitant]
     Indication: EYELID DISORDER
     Dosage: UNK, UNKNOWN
  11. ALAWAY [Concomitant]
     Indication: EYELID DISORDER
     Dosage: UNK, UNKNOWN

REACTIONS (2)
  - Cough [Recovered/Resolved]
  - Increased upper airway secretion [Recovered/Resolved]
